FAERS Safety Report 6143036-5 (Version None)
Quarter: 2009Q2

REPORT INFORMATION
  Report Type: 
  Country: None (occurrence: None)
  Receive Date: 20090401
  Receipt Date: 20090324
  Transmission Date: 20091009
  Serious: Yes (Other)
  Sender: FDA-Public Use
  Company Number: CHPA2009US07786

PATIENT
  Age: 14 Year
  Sex: Female
  Weight: 43.1 kg

DRUGS (4)
  1. TRIAMINIC NIGHT TIME COLD + COUGH (NCH) (DIPHENHYDRAMINE, PHENYLEPHRIN [Suspect]
     Indication: NASOPHARYNGITIS
     Dosage: 2 DF, BID, ORAL
     Route: 048
     Dates: start: 20090323, end: 20090323
  2. MUCINEX [Concomitant]
  3. AUGMENTIN /SCH/ (AMOXICILLIN SODIUM, CLAVULANATE POTASSIUM) [Concomitant]
  4. AMOXICILLIN + CLAVULANIC ACID (AMOXICILLIN, CLAVULANIC ACID) [Concomitant]

REACTIONS (3)
  - ABNORMAL BEHAVIOUR [None]
  - HALLUCINATION [None]
  - INSOMNIA [None]
